FAERS Safety Report 9217756 (Version 1)
Quarter: 2013Q2

REPORT INFORMATION
  Report Type: Spontaneous
  Country: BR (occurrence: BR)
  Receive Date: 20130408
  Receipt Date: 20130408
  Transmission Date: 20140414
  Serious: Yes (Other)
  Sender: FDA-Public Use
  Company Number: BR-ELI_LILLY_AND_COMPANY-BR201303009761

PATIENT
  Age: 59 Year
  Sex: Female
  Weight: 66 kg

DRUGS (7)
  1. HUMALOG LISPRO [Suspect]
     Indication: DIABETES MELLITUS
     Dosage: UNK UNK, QD
     Route: 058
     Dates: start: 201003
  2. HUMALOG LISPRO [Suspect]
     Dosage: UNK, QD
     Route: 058
     Dates: start: 20130321
  3. LEVOID [Concomitant]
     Dosage: UNK, UNKNOWN
     Route: 065
  4. BENICAR [Concomitant]
     Dosage: UNK, UNKNOWN
     Route: 065
  5. METFORMINA [Concomitant]
     Dosage: 850 MG, QD
  6. GINKGO BILOBA [Concomitant]
     Dosage: UNK, UNKNOWN
     Route: 065
  7. DAFLON [Concomitant]
     Dosage: UNK, UNKNOWN
     Route: 065

REACTIONS (5)
  - Eye haemorrhage [Unknown]
  - Blood glucose increased [Unknown]
  - Drug dose omission [Unknown]
  - Hyperglycaemia [Unknown]
  - Drug ineffective [Unknown]
